FAERS Safety Report 9678661 (Version 1)
Quarter: 2013Q4

REPORT INFORMATION
  Report Type: Spontaneous
  Country: GB (occurrence: GB)
  Receive Date: 20131108
  Receipt Date: 20131108
  Transmission Date: 20140711
  Serious: Yes (Death, Other)
  Sender: FDA-Public Use
  Company Number: GB-AMGEN-GBRSP2013077671

PATIENT
  Age: 70 Year
  Sex: Male

DRUGS (9)
  1. ENBREL [Suspect]
     Indication: PSORIATIC ARTHROPATHY
     Dosage: UNK
     Route: 030
     Dates: start: 20130808
  2. METHOTREXATE SODIUM [Suspect]
     Indication: PSORIATIC ARTHROPATHY
     Dosage: UNK
     Route: 030
     Dates: start: 20051107
  3. AMITRIPTYLINE [Concomitant]
     Dosage: 25 MG ONCE DAILY AT NIGHT
  4. ASPIRIN [Concomitant]
     Dosage: 75 MG 1X DAY IN THE MORNING
  5. BUPRENORPHINE [Concomitant]
     Dosage: 25 MUG, UNK
  6. NAPROXEN [Concomitant]
     Dosage: 250 MG, 2X/DAY
  7. OMEPRAZOLE [Concomitant]
     Dosage: 10 MG, UNK
  8. RAMIPRIL [Concomitant]
     Dosage: 10 MG 1X DAY IN THE MORINING
  9. CLENIL MODULITE [Concomitant]
     Dosage: UNK UNK, BID
     Route: 055

REACTIONS (2)
  - Pulmonary fibrosis [Fatal]
  - Cough [Not Recovered/Not Resolved]
